FAERS Safety Report 5880871-2 (Version None)
Quarter: 2008Q3

REPORT INFORMATION
  Report Type: 
  Country: None (occurrence: None)
  Receive Date: 20080912
  Receipt Date: 20080611
  Transmission Date: 20090109
  Serious: Yes (Hospitalization)
  Sender: FDA-Public Use
  Company Number: US-ABBOTT-08P-163-0456749-00

PATIENT
  Sex: Female
  Weight: 83.99 kg

DRUGS (16)
  1. HUMIRA [Suspect]
     Indication: PSORIATIC ARTHROPATHY
     Route: 058
     Dates: start: 20070501, end: 20080131
  2. HUMIRA [Suspect]
     Route: 058
     Dates: start: 20080301, end: 20080425
  3. HUMIRA [Suspect]
     Route: 058
     Dates: start: 20080610
  4. LEVOTHYROXINE SODIUM [Concomitant]
     Indication: THYROID OPERATION
     Route: 048
     Dates: start: 19980101
  5. OMEPRAZOLE [Concomitant]
     Indication: GASTROOESOPHAGEAL REFLUX DISEASE
     Route: 048
     Dates: start: 20080501
  6. ATORVASTATIN CALCIUM [Concomitant]
     Indication: BLOOD CHOLESTEROL INCREASED
     Route: 048
     Dates: start: 20080501
  7. CITALOPRAM HYDROBROMIDE [Concomitant]
     Indication: DEPRESSION
     Route: 048
     Dates: start: 20030101
  8. FOLIC ACID [Concomitant]
     Indication: VITAMIN SUPPLEMENTATION
     Route: 048
     Dates: start: 20070501
  9. ALENDRONATE SODIUM [Concomitant]
     Indication: OSTEOPOROSIS
     Route: 048
     Dates: start: 20060101
  10. HYDRODURIL [Concomitant]
     Indication: HYPERTENSION
     Route: 048
  11. ADVIR INHALER [Concomitant]
     Indication: CHRONIC OBSTRUCTIVE PULMONARY DISEASE
     Dosage: 250/50 DAILY
     Route: 055
     Dates: start: 20060101
  12. SPIROVIA INHALER [Concomitant]
     Indication: CHRONIC OBSTRUCTIVE PULMONARY DISEASE
     Route: 055
     Dates: start: 20060101
  13. MULTI-VITAMIN [Concomitant]
     Indication: VITAMIN SUPPLEMENTATION
     Route: 048
  14. ASPIRIN [Concomitant]
     Indication: CARDIOVASCULAR EVENT PROPHYLAXIS
     Route: 048
  15. CALCIUM WITH VITAMIN D [Concomitant]
     Indication: VITAMIN SUPPLEMENTATION
     Route: 048
  16. FISH OIL [Concomitant]
     Indication: MINERAL SUPPLEMENTATION
     Route: 048
     Dates: start: 20080301

REACTIONS (7)
  - BLOOD CHOLESTEROL INCREASED [None]
  - DYSPNOEA [None]
  - HERPES ZOSTER [None]
  - LUNG NEOPLASM [None]
  - MUSCULOSKELETAL STIFFNESS [None]
  - PYREXIA [None]
  - VIRAL INFECTION [None]
